FAERS Safety Report 5749180-6 (Version None)
Quarter: 2008Q2

REPORT INFORMATION
  Report Type: 
  Country: None (occurrence: None)
  Receive Date: 20080527
  Receipt Date: 20080514
  Transmission Date: 20081010
  Serious: Yes (Hospitalization, Other)
  Sender: FDA-Public Use
  Company Number: TW-ROCHE-564715

PATIENT
  Age: 40 Year
  Sex: Male

DRUGS (5)
  1. CELLCEPT [Suspect]
     Route: 048
     Dates: start: 20080411, end: 20080422
  2. MYFORTIC [Suspect]
     Route: 065
     Dates: start: 20080429, end: 20080502
  3. FK-506 [Concomitant]
     Dates: start: 20080411, end: 20080418
  4. RAPAMUNE [Concomitant]
     Dates: start: 20080422
  5. CYCLOSPORINE [Concomitant]
     Dates: start: 20080422

REACTIONS (7)
  - APHASIA [None]
  - CONFUSIONAL STATE [None]
  - DYSARTHRIA [None]
  - NEUROTOXICITY [None]
  - PARAESTHESIA [None]
  - PYREXIA [None]
  - TREMOR [None]
